FAERS Safety Report 6604200-1 (Version None)
Quarter: 2010Q1

REPORT INFORMATION
  Report Type: 
  Country: None (occurrence: None)
  Receive Date: 20100226
  Receipt Date: 20090713
  Transmission Date: 20100710
  Serious: No
  Sender: FDA-Public Use
  Company Number: A0795000A

PATIENT
  Age: 55 Year
  Sex: Female

DRUGS (3)
  1. LAMICTAL CD [Suspect]
     Indication: BIPOLAR DISORDER
     Dosage: 100MG TWICE PER DAY
     Route: 048
     Dates: start: 20050101
  2. SEROQUEL [Suspect]
     Dosage: 300MG UNKNOWN
     Route: 048
     Dates: start: 20050101
  3. DIAZEPAM [Concomitant]
     Dosage: 5MG THREE TIMES PER DAY
     Route: 048

REACTIONS (1)
  - RASH [None]
